FAERS Safety Report 5572256-3 (Version None)
Quarter: 2007Q4

REPORT INFORMATION
  Report Type: 
  Country: None (occurrence: None)
  Receive Date: 20071221
  Receipt Date: 20071210
  Transmission Date: 20080405
  Serious: Yes (Other)
  Sender: FDA-Public Use
  Company Number: US-PFIZER INC-2007104574

PATIENT
  Sex: Female
  Weight: 61.2 kg

DRUGS (7)
  1. XANAX [Suspect]
     Indication: ANXIETY
  2. TOPROL-XL [Concomitant]
  3. DONNATAL [Concomitant]
  4. ESTROVEN [Concomitant]
  5. TYLENOL [Concomitant]
  6. ALL OTHER THERAPEUTIC PRODUCTS [Concomitant]
  7. PRILOSEC [Concomitant]

REACTIONS (19)
  - ABDOMINAL DISTENSION [None]
  - ALOPECIA [None]
  - ANXIETY [None]
  - BLOOD TRIGLYCERIDES INCREASED [None]
  - CATARACT OPERATION [None]
  - CRYING [None]
  - ENDOCRINE DISORDER [None]
  - FATIGUE [None]
  - HEADACHE [None]
  - LOGORRHOEA [None]
  - MEMORY IMPAIRMENT [None]
  - NERVOUSNESS [None]
  - OEDEMA PERIPHERAL [None]
  - POLLAKIURIA [None]
  - TACHYCARDIA [None]
  - TENSION [None]
  - TREMOR [None]
  - VISION BLURRED [None]
  - VOMITING [None]
